FAERS Safety Report 23454683 (Version 1)
Quarter: 2024Q1

REPORT INFORMATION
  Report Type: Spontaneous
  Country: US (occurrence: None)
  Receive Date: 20240130
  Receipt Date: 20240130
  Transmission Date: 20240409
  Serious: No
  Sender: FDA-Public Use
  Company Number: 2024A022142

PATIENT
  Age: 53 Year
  Sex: Female

DRUGS (10)
  1. TEZSPIRE [Suspect]
     Active Substance: TEZEPELUMAB-EKKO
     Indication: Chronic respiratory failure
     Dosage: 210MG/1.91ML
     Route: 058
  2. TEZSPIRE [Suspect]
     Active Substance: TEZEPELUMAB-EKKO
     Indication: Hypoxia
     Dosage: 210MG/1.91ML
     Route: 058
  3. VITAMIN D [Concomitant]
     Active Substance: VITAMIN D NOS
  4. FUROSEMIDE [Concomitant]
     Active Substance: FUROSEMIDE
  5. TYLENOL [Concomitant]
     Active Substance: ACETAMINOPHEN
  6. ZYRTEC [Concomitant]
     Active Substance: CETIRIZINE HYDROCHLORIDE
  7. BENADRYL [Concomitant]
     Active Substance: DIPHENHYDRAMINE HYDROCHLORIDE
  8. PANTOPRAZOLE SODIUM [Concomitant]
     Active Substance: PANTOPRAZOLE SODIUM
  9. SINGULAIR [Concomitant]
     Active Substance: MONTELUKAST SODIUM
  10. JARDIANCE [Concomitant]
     Active Substance: EMPAGLIFLOZIN

REACTIONS (2)
  - Arthritis [Unknown]
  - Headache [Unknown]

NARRATIVE: CASE EVENT DATE: 20240119
